FAERS Safety Report 24794252 (Version 1)
Quarter: 2024Q4

REPORT INFORMATION
  Report Type: Spontaneous
  Country: US (occurrence: None)
  Receive Date: 20241230
  Receipt Date: 20241230
  Transmission Date: 20250115
  Serious: Yes (Hospitalization, Disabling, Other)
  Sender: Public
  Company Number: None

PATIENT
  Age: 53 Year
  Sex: Male

DRUGS (1)
  1. REGADENOSON [Suspect]
     Active Substance: REGADENOSON

REACTIONS (5)
  - Hyperhidrosis [None]
  - Migraine [None]
  - Cerebrovascular accident [None]
  - Dizziness [None]
  - Aphasia [None]

NARRATIVE: CASE EVENT DATE: 20241210
